FAERS Safety Report 19710499 (Version 1)
Quarter: 2021Q3

REPORT INFORMATION
  Report Type: Report from Study
  Country: CA (occurrence: CA)
  Receive Date: 20210816
  Receipt Date: 20210816
  Transmission Date: 20211014
  Serious: Yes (Other)
  Sender: FDA-Public Use
  Company Number: CA-PFIZER INC-202100993356

PATIENT
  Age: 52 Year
  Sex: Female

DRUGS (7)
  1. COSENTYX [Suspect]
     Active Substance: SECUKINUMAB
     Indication: PSORIASIS
     Dosage: 300 MG, MONTHLY
     Route: 058
  2. PHENOL/ZINC OXIDE [Concomitant]
  3. CLOBETASOL [Concomitant]
     Active Substance: CLOBETASOL
  4. BETAMETHASONE DIPROPIONATE/CALCIPOTRIOL [Concomitant]
     Active Substance: BETAMETHASONE DIPROPIONATE\CALCIPOTRIENE
  5. COSENTYX [Suspect]
     Active Substance: SECUKINUMAB
     Indication: PSORIASIS
     Dosage: 300 MG, WEEKLY
     Route: 058
  6. METHOTREXATE. [Concomitant]
     Active Substance: METHOTREXATE
  7. CIPROFLOXACIN. [Suspect]
     Active Substance: CIPROFLOXACIN

REACTIONS (8)
  - Sinusitis [Unknown]
  - Paranasal sinus discomfort [Unknown]
  - Sinus congestion [Unknown]
  - Eye disorder [Unknown]
  - Muscle spasms [Unknown]
  - Anaphylactic shock [Unknown]
  - Eye swelling [Unknown]
  - Fatigue [Unknown]
